FAERS Safety Report 5229631-6 (Version None)
Quarter: 2007Q1

REPORT INFORMATION
  Report Type: 
  Country: None (occurrence: None)
  Receive Date: 20070205
  Receipt Date: 20070126
  Transmission Date: 20070707
  Serious: Yes (Hospitalization)
  Sender: FDA-Public Use
  Company Number: IT-ABBOTT-07P-083-0357303-00

PATIENT
  Sex: Male

DRUGS (2)
  1. VECLAM [Suspect]
     Indication: DRUG USE FOR UNKNOWN INDICATION
     Dates: start: 20070112, end: 20070116
  2. SEKI DROPS 25 ML SUSPENSION [Concomitant]
     Indication: DRUG USE FOR UNKNOWN INDICATION
     Route: 048
     Dates: start: 20070112, end: 20070116

REACTIONS (5)
  - CONJUNCTIVITIS [None]
  - DERMATITIS BULLOUS [None]
  - RASH ERYTHEMATOUS [None]
  - SKIN LESION [None]
  - STOMATITIS [None]
